FAERS Safety Report 5650501-3 (Version None)
Quarter: 2008Q1

REPORT INFORMATION
  Report Type: 
  Country: None (occurrence: None)
  Receive Date: 20080131
  Receipt Date: 20071220
  Transmission Date: 20080703
  Serious: No
  Sender: FDA-Public Use
  Company Number: US200712004470

PATIENT
  Age: 47 Year
  Sex: Male
  Weight: 147.4 kg

DRUGS (23)
  1. BYETTA [Suspect]
     Indication: INSULIN-REQUIRING TYPE 2 DIABETES MELLITUS
     Dosage: 5 UG, 2/D, SUBCUTANEOUS ; 10 UG, 2/D, SUBCUTANEOUS ; 5 UG, 2/D, SUBCUTANEOUS
     Route: 058
     Dates: start: 20070901, end: 20070901
  2. BYETTA [Suspect]
     Indication: INSULIN-REQUIRING TYPE 2 DIABETES MELLITUS
     Dosage: 5 UG, 2/D, SUBCUTANEOUS ; 10 UG, 2/D, SUBCUTANEOUS ; 5 UG, 2/D, SUBCUTANEOUS
     Route: 058
     Dates: start: 20071201, end: 20071215
  3. BYETTA [Suspect]
     Indication: INSULIN-REQUIRING TYPE 2 DIABETES MELLITUS
     Dosage: 5 UG, 2/D, SUBCUTANEOUS ; 10 UG, 2/D, SUBCUTANEOUS ; 5 UG, 2/D, SUBCUTANEOUS
     Route: 058
     Dates: start: 20071216, end: 20071219
  4. GLYBURIDE [Concomitant]
  5. METFORMIN HCL [Concomitant]
  6. LANTUS [Concomitant]
  7. TYLENOL /USA/ (PARACETAMOL) [Concomitant]
  8. PERCOCET [Concomitant]
  9. LORAZEPAM [Concomitant]
  10. METHOCARBAMOL [Concomitant]
  11. PROMETHAZINE [Concomitant]
  12. ALBUTEROL [Concomitant]
  13. ADVAIR (FLUTICASONE PROPIONATE, SALMETEREOL XINAFOATE) [Concomitant]
  14. SIMVASTATIN [Concomitant]
  15. LASIX /USA/ (FUROSEMIDE) [Concomitant]
  16. FLUOXETINE [Concomitant]
  17. GABAPENTIN [Concomitant]
  18. TRILEPTAL [Concomitant]
  19. VITAMIN D (ERGOCALCIEFEROL) [Concomitant]
  20. ONE-A-DAY (MINERALS NOS, VITAMINS NOS) [Concomitant]
  21. TRAZODONE HCL [Concomitant]
  22. BACLOFEN [Concomitant]
  23. DOCUSATE SODIUM (DOCUSATE SODIUM) [Concomitant]

REACTIONS (5)
  - BLOOD GLUCOSE DECREASED [None]
  - BLOOD GLUCOSE INCREASED [None]
  - DRUG INTERACTION [None]
  - NAUSEA [None]
  - VOMITING [None]
